FAERS Safety Report 14235231 (Version 3)
Quarter: 2018Q3

REPORT INFORMATION
  Report Type: Report from Study
  Country: MX (occurrence: MX)
  Receive Date: 20171129
  Receipt Date: 20180727
  Transmission Date: 20181010
  Serious: Yes (Hospitalization)
  Sender: FDA-Public Use
  Company Number: MX-ORION CORPORATION ORION PHARMA-ENTC2017-0528

PATIENT
  Age: 83 Year
  Sex: Male

DRUGS (7)
  1. EXELON [Suspect]
     Active Substance: RIVASTIGMINE TARTRATE
     Indication: DEMENTIA ALZHEIMER^S TYPE
     Dosage: PATCH 15 CM2
     Route: 062
     Dates: start: 201710
  2. BIPERIDEN [Concomitant]
     Active Substance: BIPERIDEN
     Route: 065
  3. EBIXA [Concomitant]
     Active Substance: MEMANTINE HYDROCHLORIDE
     Route: 065
  4. DARDAREN [Concomitant]
     Route: 065
  5. PEMIX [Concomitant]
     Route: 065
  6. STALEVO [Suspect]
     Active Substance: CARBIDOPA\ENTACAPONE\LEVODOPA
     Indication: PARKINSON^S DISEASE
     Dosage: STRENGTH: 200/50/200 MG
     Route: 048
     Dates: start: 201612, end: 201710
  7. STALEVO [Suspect]
     Active Substance: CARBIDOPA\ENTACAPONE\LEVODOPA
     Dosage: STRENGTH: 200/50/200 MG
     Route: 048
     Dates: start: 201710

REACTIONS (13)
  - Urinary tract infection [Recovered/Resolved]
  - Dry skin [Recovering/Resolving]
  - Decreased appetite [Unknown]
  - Skin ulcer [Not Recovered/Not Resolved]
  - Septic shock [Recovering/Resolving]
  - Stool pH increased [Recovering/Resolving]
  - Asthenia [Unknown]
  - Dysphagia [Unknown]
  - Condition aggravated [Unknown]
  - Decubitus ulcer [Recovering/Resolving]
  - Skin fragility [Recovering/Resolving]
  - Muscle atrophy [Unknown]
  - Mastication disorder [Unknown]

NARRATIVE: CASE EVENT DATE: 201710
